FAERS Safety Report 22168905 (Version 1)
Quarter: 2023Q2

REPORT INFORMATION
  Report Type: Spontaneous
  Country: US (occurrence: US)
  Receive Date: 20230403
  Receipt Date: 20230403
  Transmission Date: 20230722
  Serious: No
  Sender: FDA-Public Use
  Company Number: US-PURDUE PHARMA-USA-2022-0295474

PATIENT
  Age: 43 Year
  Sex: Male
  Weight: 80.29 kg

DRUGS (2)
  1. BUPRENORPHINE [Suspect]
     Active Substance: BUPRENORPHINE
     Indication: Pain in extremity
     Dosage: 8 MILLIGRAM, TWICE
     Route: 048
     Dates: start: 20220721
  2. BUPRENORPHINE [Suspect]
     Active Substance: BUPRENORPHINE
     Indication: Back pain

REACTIONS (3)
  - Drug ineffective [Unknown]
  - Drug withdrawal syndrome [Recovered/Resolved]
  - Product physical issue [Unknown]

NARRATIVE: CASE EVENT DATE: 20220721
